FAERS Safety Report 21474320 (Version 1)
Quarter: 2022Q4

REPORT INFORMATION
  Report Type: Spontaneous
  Country: US (occurrence: US)
  Receive Date: 20221018
  Receipt Date: 20221018
  Transmission Date: 20230113
  Serious: No
  Sender: FDA-Public Use
  Company Number: US-BIOGEN-2019BI00793758

PATIENT
  Age: 53 Year
  Sex: Female

DRUGS (21)
  1. TECFIDERA [Suspect]
     Active Substance: DIMETHYL FUMARATE
     Indication: Multiple sclerosis
     Dosage: ALTERNATIVE TITRATION SCHEDULE
     Route: 050
     Dates: start: 20190913, end: 20190919
  2. TECFIDERA [Suspect]
     Active Substance: DIMETHYL FUMARATE
     Dosage: ALTERNATIVE TITRATION SCHEDULE
     Route: 050
     Dates: start: 20190920, end: 20190926
  3. TECFIDERA [Suspect]
     Active Substance: DIMETHYL FUMARATE
     Dosage: 120MG IN AM; 240MG IN PM
     Route: 050
     Dates: start: 20190927, end: 20191003
  4. TECFIDERA [Suspect]
     Active Substance: DIMETHYL FUMARATE
     Dosage: 120MG IN AM; 240MG IN PM
     Route: 050
     Dates: start: 20190927, end: 20191003
  5. TECFIDERA [Suspect]
     Active Substance: DIMETHYL FUMARATE
     Route: 050
     Dates: start: 20191003
  6. TECFIDERA [Suspect]
     Active Substance: DIMETHYL FUMARATE
     Route: 050
  7. VITAMIN D [Concomitant]
     Active Substance: VITAMIN D NOS
     Route: 050
  8. DILTIAZEM [Concomitant]
     Active Substance: DILTIAZEM
     Route: 050
  9. ESCITALOPRAM [Concomitant]
     Active Substance: ESCITALOPRAM OXALATE
     Route: 050
  10. LOSARTAN [Concomitant]
     Active Substance: LOSARTAN
     Route: 050
  11. NAPROXEN [Concomitant]
     Active Substance: NAPROXEN
     Route: 050
  12. VALACYCLOVIR [Concomitant]
     Active Substance: VALACYCLOVIR HYDROCHLORIDE
     Route: 050
  13. PREDNISOLONE [Concomitant]
     Active Substance: PREDNISOLONE
     Route: 050
  14. HERBALS [Concomitant]
     Active Substance: HERBALS
     Route: 050
  15. ALBUTEROL [Concomitant]
     Active Substance: ALBUTEROL
     Route: 050
  16. MECLIZINE 25 [Concomitant]
     Route: 050
  17. METOPROLOL SUCCINATE [Concomitant]
     Active Substance: METOPROLOL SUCCINATE
     Route: 050
  18. SYMBICORT [Concomitant]
     Active Substance: BUDESONIDE\FORMOTEROL FUMARATE DIHYDRATE
     Route: 050
  19. OMEPRAZOLE [Concomitant]
     Active Substance: OMEPRAZOLE
     Route: 050
  20. MODAFINIL [Concomitant]
     Active Substance: MODAFINIL
     Route: 050
  21. BENADRYL [Suspect]
     Active Substance: DIPHENHYDRAMINE HYDROCHLORIDE
     Route: 050

REACTIONS (11)
  - Inappropriate schedule of product administration [Recovered/Resolved]
  - Headache [Not Recovered/Not Resolved]
  - Vitamin D increased [Unknown]
  - Palpitations [Not Recovered/Not Resolved]
  - Paraesthesia [Unknown]
  - Influenza like illness [Unknown]
  - Abdominal discomfort [Unknown]
  - Nausea [Not Recovered/Not Resolved]
  - Pruritus [Not Recovered/Not Resolved]
  - Flushing [Unknown]
  - Dyspepsia [Unknown]

NARRATIVE: CASE EVENT DATE: 20200203
